FAERS Safety Report 6604988-X (Version None)
Quarter: 2010Q1

REPORT INFORMATION
  Report Type: 
  Country: None (occurrence: None)
  Receive Date: 20100219
  Receipt Date: 20100203
  Transmission Date: 20100710
  Serious: Yes (Other)
  Sender: FDA-Public Use
  Company Number: CTI_01122_2010

PATIENT
  Age: 68 Year
  Sex: Male

DRUGS (4)
  1. SPECTRACEF [Suspect]
     Indication: SKIN INFECTION
     Dosage: 300 MG QD ORAL
     Route: 048
     Dates: start: 20100129
  2. HERBAL PREPARATION (YOKUKANSAN (CHINESE HERBAL MEDICINE)) [Suspect]
     Indication: DRUG USE FOR UNKNOWN INDICATION
     Dosage: DF ORAL
     Route: 048
     Dates: start: 20100129
  3. AMANTADINE HYDROCHLORIDE [Concomitant]
  4. DISTIGMINE BROMIDE [Concomitant]

REACTIONS (2)
  - BLOOD PRESSURE DECREASED [None]
  - LOSS OF CONSCIOUSNESS [None]
